FAERS Safety Report 9992616 (Version 2)
Quarter: 2014Q2

REPORT INFORMATION
  Report Type: Spontaneous
  Country: US (occurrence: US)
  Receive Date: 20140310
  Receipt Date: 20140401
  Transmission Date: 20141212
  Serious: No
  Sender: FDA-Public Use
  Company Number: US-PFIZER INC-2014067494

PATIENT
  Age: 66 Year
  Sex: Female

DRUGS (4)
  1. GABAPENTIN [Suspect]
     Dosage: UNK
  2. NEURONTIN [Suspect]
     Dosage: 900 MG, UNK
     Route: 048
     Dates: start: 2004, end: 2012
  3. LEXAPRO [Suspect]
     Dosage: UNK
  4. CYMBALTA [Suspect]
     Dosage: UNK

REACTIONS (3)
  - Drug hypersensitivity [Unknown]
  - Tardive dyskinesia [Unknown]
  - Dyskinesia [Recovering/Resolving]
